FAERS Safety Report 13286441 (Version 2)
Quarter: 2017Q4

REPORT INFORMATION
  Report Type: Spontaneous
  Country: TR (occurrence: TR)
  Receive Date: 20170301
  Receipt Date: 20171031
  Transmission Date: 20180320
  Serious: Yes (Other)
  Sender: FDA-Public Use
  Company Number: TR-ABBVIE-17P-161-1890872-00

PATIENT
  Age: 80 Year
  Sex: Female

DRUGS (1)
  1. KREON [Suspect]
     Active Substance: PANCRELIPASE
     Indication: PANCREATIC FAILURE
     Route: 048
     Dates: start: 201702, end: 201702

REACTIONS (1)
  - Lip oedema [Recovered/Resolved]

NARRATIVE: CASE EVENT DATE: 201702
